FAERS Safety Report 6877106-0 (Version None)
Quarter: 2010Q3

REPORT INFORMATION
  Report Type: 
  Country: None (occurrence: None)
  Receive Date: 20100727
  Receipt Date: 20100726
  Transmission Date: 20110219
  Serious: Yes (Hospitalization)
  Sender: FDA-Public Use
  Company Number: FR-MERCK-1004FRA00106

PATIENT
  Age: 82 Year
  Sex: Male

DRUGS (12)
  1. JANUMET [Suspect]
     Indication: INSULIN-REQUIRING TYPE 2 DIABETES MELLITUS
     Route: 048
     Dates: start: 20100114, end: 20100306
  2. GLIMEPIRIDE [Suspect]
     Indication: INSULIN-REQUIRING TYPE 2 DIABETES MELLITUS
     Route: 065
  3. FUROSEMIDE [Concomitant]
     Route: 065
  4. POTASSIUM CHLORIDE [Concomitant]
     Route: 065
  5. OMEPRAZOLE [Concomitant]
     Route: 065
  6. DIGOXIN [Concomitant]
     Route: 065
  7. NITROGLYCERIN [Concomitant]
     Route: 061
  8. FLUINDIONE [Concomitant]
     Route: 065
  9. INSULIN GLARGINE [Concomitant]
     Route: 065
  10. INSULIN ASPART [Concomitant]
     Route: 065
  11. ZOLPIDEM TARTRATE [Concomitant]
     Route: 065
  12. ESCITALOPRAM OXALATE [Concomitant]
     Route: 065

REACTIONS (1)
  - VASCULAR PURPURA [None]
